FAERS Safety Report 17965366 (Version 1)
Quarter: 2020Q2

REPORT INFORMATION
  Report Type: Spontaneous
  Country: US (occurrence: US)
  Receive Date: 20200630
  Receipt Date: 20200630
  Transmission Date: 20200714
  Serious: No
  Sender: FDA-Public Use
  Company Number: US-SA-2020SA167876

PATIENT

DRUGS (4)
  1. DUPIXENT [Suspect]
     Active Substance: DUPILUMAB
     Indication: DERMATITIS
     Dosage: QOW
     Route: 058
     Dates: start: 20200403
  2. CHLORHEXIDINE GLUCONATE. [Concomitant]
     Active Substance: CHLORHEXIDINE GLUCONATE
  3. DOXEPIN [Concomitant]
     Active Substance: DOXEPIN
  4. AMOXICILLIN. [Concomitant]
     Active Substance: AMOXICILLIN

REACTIONS (1)
  - Dermatitis [Not Recovered/Not Resolved]

NARRATIVE: CASE EVENT DATE: 2020
